FAERS Safety Report 6110771-4 (Version None)
Quarter: 2009Q1

REPORT INFORMATION
  Report Type: 
  Country: None (occurrence: None)
  Receive Date: 20090311
  Receipt Date: 20090225
  Transmission Date: 20090719
  Serious: Yes (Hospitalization)
  Sender: FDA-Public Use
  Company Number: PHHY2009MX07258

PATIENT
  Sex: Female

DRUGS (1)
  1. DIOVAN HCT [Suspect]
     Indication: HYPERTENSION
     Dosage: 1 TABLET (160 MG VALSARTAN/12.5 MG HYDROCHLOROTHIAZIDE) PER DAY
     Route: 048
     Dates: start: 20071001, end: 20090210

REACTIONS (2)
  - HERNIA REPAIR [None]
  - SEMINAL VESICLE OPERATION [None]
